FAERS Safety Report 5580382-8 (Version None)
Quarter: 2007Q4

REPORT INFORMATION
  Report Type: 
  Country: None (occurrence: None)
  Receive Date: 20071226
  Receipt Date: 20071207
  Transmission Date: 20080405
  Serious: Yes (Other)
  Sender: FDA-Public Use
  Company Number: 8028572

PATIENT
  Sex: Female

DRUGS (5)
  1. KEPPRA [Suspect]
     Indication: CONVULSION
     Dosage: TRP
     Route: 064
     Dates: start: 20070101, end: 20070903
  2. LAMICTAL [Concomitant]
  3. PROCARDIA [Concomitant]
  4. FOLIC ACID [Concomitant]
  5. PRENATAL VITAMINS [Concomitant]

REACTIONS (6)
  - COMPLEX PARTIAL SEIZURES [None]
  - DRUG EXPOSURE DURING PREGNANCY [None]
  - FOETAL GROWTH RETARDATION [None]
  - PREGNANCY [None]
  - PREMATURE BABY [None]
  - UTERINE LEIOMYOMA [None]
